FAERS Safety Report 7406843-4 (Version None)
Quarter: 2011Q2

REPORT INFORMATION
  Report Type: 
  Country: None (occurrence: None)
  Receive Date: 20110404
  Receipt Date: 20110329
  Transmission Date: 20111010
  Serious: Yes (Hospitalization, Other)
  Sender: FDA-Public Use
  Company Number: 2010SP062391

PATIENT
  Age: 28 Year
  Sex: Female
  Weight: 58.9676 kg

DRUGS (5)
  1. ACETAMINOPHEN [Concomitant]
  2. NUVARING [Suspect]
     Indication: CONTRACEPTION
     Dates: start: 20080101
  3. NUVARING [Suspect]
     Indication: UTERINE LEIOMYOMA
     Dates: start: 20080101
  4. NUVARING [Suspect]
     Indication: CONTRACEPTION
     Dates: start: 20000101
  5. NUVARING [Suspect]
     Indication: UTERINE LEIOMYOMA
     Dates: start: 20000101

REACTIONS (11)
  - MOVEMENT DISORDER [None]
  - ASTHENIA [None]
  - PAIN [None]
  - OVARIAN CYST [None]
  - INJURY [None]
  - APHASIA [None]
  - UTERINE LEIOMYOMA [None]
  - ROAD TRAFFIC ACCIDENT [None]
  - DYSARTHRIA [None]
  - HEADACHE [None]
  - COORDINATION ABNORMAL [None]
